FAERS Safety Report 22174856 (Version 2)
Quarter: 2023Q4

REPORT INFORMATION
  Report Type: Report from Study
  Country: US (occurrence: US)
  Receive Date: 20230405
  Receipt Date: 20231027
  Transmission Date: 20240110
  Serious: Yes (Hospitalization, Other)
  Sender: FDA-Public Use
  Company Number: US-BEH-2023156990

PATIENT
  Age: 59 Year
  Sex: Female
  Weight: 68 kg

DRUGS (2)
  1. HIZENTRA [Suspect]
     Active Substance: HUMAN IMMUNOGLOBULIN G
     Indication: Primary immunodeficiency syndrome
     Dosage: UNK
     Route: 058
  2. HIZENTRA [Suspect]
     Active Substance: HUMAN IMMUNOGLOBULIN G
     Dosage: UNK
     Route: 065

REACTIONS (6)
  - Upper respiratory tract infection [Unknown]
  - Atrial fibrillation [Unknown]
  - No adverse event [Unknown]
  - Therapy interrupted [Unknown]
  - No adverse event [Unknown]
  - Product use issue [Unknown]
